FAERS Safety Report 9514598 (Version 1)
Quarter: 2013Q3

REPORT INFORMATION
  Report Type: Spontaneous
  Country: CA (occurrence: CA)
  Receive Date: 20130911
  Receipt Date: 20130911
  Transmission Date: 20140515
  Serious: Yes (Life-Threatening)
  Sender: FDA-Public Use
  Company Number: CA-ROCHE-1272228

PATIENT
  Age: 68 Year
  Sex: Male

DRUGS (3)
  1. CEFTRIAXONE SODIUM [Suspect]
     Indication: PRODUCT USED FOR UNKNOWN INDICATION
     Dosage: CEFTRIAXONE FOR INJECTION USP
     Route: 030
  2. GENTAMICIN [Concomitant]
     Route: 042
  3. VANCOMYCIN [Concomitant]
     Route: 042

REACTIONS (3)
  - Angioedema [Recovered/Resolved]
  - Paraesthesia oral [Recovered/Resolved]
  - Throat tightness [Recovered/Resolved]
